FAERS Safety Report 9819116 (Version 7)
Quarter: 2014Q4

REPORT INFORMATION
  Report Type: Report from Study
  Country: US (occurrence: US)
  Receive Date: 20140115
  Receipt Date: 20141226
  Transmission Date: 20150529
  Serious: Yes (Hospitalization, Other)
  Sender: FDA-Public Use
  Company Number: US-BRISTOL-MYERS SQUIBB COMPANY-19982115

PATIENT
  Age: 53 Year
  Sex: Female
  Weight: 77.1 kg

DRUGS (23)
  1. VENLAFAXINE HCL [Concomitant]
     Active Substance: VENLAFAXINE HYDROCHLORIDE
  2. TYLENOL [Concomitant]
     Active Substance: ACETAMINOPHEN
  3. AMILORIDE [Concomitant]
     Active Substance: AMILORIDE
  4. POTASSIUM [Concomitant]
     Active Substance: POTASSIUM
  5. PANTOPRAZOLE [Concomitant]
     Active Substance: PANTOPRAZOLE SODIUM
  6. SIMVASTATIN. [Concomitant]
     Active Substance: SIMVASTATIN
  7. ZOLPIDEM [Concomitant]
     Active Substance: ZOLPIDEM\ZOLPIDEM TARTRATE
  8. HYDROCORTISONE. [Concomitant]
     Active Substance: HYDROCORTISONE
  9. IMODIUM [Concomitant]
     Active Substance: LOPERAMIDE HYDROCHLORIDE
     Dosage: 16 MG, UNK
     Dates: start: 20130913
  10. SODIUM CHLORIDE. [Concomitant]
     Active Substance: SODIUM CHLORIDE
  11. ASPIRIN. [Concomitant]
     Active Substance: ASPIRIN
  12. IPILIMUMAB [Suspect]
     Active Substance: IPILIMUMAB
     Indication: OVARIAN CANCER
     Dosage: 10MG/KG
     Route: 042
     Dates: start: 20130913, end: 20131115
  13. PERCOCET [Concomitant]
     Active Substance: ACETAMINOPHEN\OXYCODONE HYDROCHLORIDE
     Dosage: 60 MG, UNK
     Dates: start: 20130909
  14. MULTI VITAMIN [Concomitant]
     Active Substance: VITAMINS
  15. CEPACOL LOZENGES [Concomitant]
  16. ZOFRAN [Concomitant]
     Active Substance: ONDANSETRON HYDROCHLORIDE
  17. FAMOTIDINE. [Concomitant]
     Active Substance: FAMOTIDINE
  18. TAMIFLU [Concomitant]
     Active Substance: OSELTAMIVIR PHOSPHATE
  19. MAGNESIUM [Concomitant]
     Active Substance: MAGNESIUM
  20. BISACODYL. [Concomitant]
     Active Substance: BISACODYL
  21. AZITHROMYCIN [Concomitant]
     Active Substance: AZITHROMYCIN ANHYDROUS
  22. METOPROLOL [Concomitant]
     Active Substance: METOPROLOL
  23. OXYCODONE [Concomitant]
     Active Substance: OXYCODONE

REACTIONS (3)
  - Adrenal insufficiency [Recovered/Resolved with Sequelae]
  - Influenza [Recovered/Resolved]
  - Hypophysitis [Unknown]

NARRATIVE: CASE EVENT DATE: 20131226
